FAERS Safety Report 11255222 (Version 1)
Quarter: 2015Q3

REPORT INFORMATION
  Report Type: Spontaneous
  Country: US (occurrence: US)
  Receive Date: 20150709
  Receipt Date: 20150709
  Transmission Date: 20151125
  Serious: Yes (Hospitalization)
  Sender: FDA-Public Use
  Company Number: US-TEVA-575206USA

PATIENT
  Sex: Male

DRUGS (6)
  1. FISH OIL [Suspect]
     Active Substance: FISH OIL
     Indication: PRODUCT USED FOR UNKNOWN INDICATION
     Dosage: DOSE AND FREQUENCY NOT PROVIDED
     Route: 065
  2. LEVOTHYROXINE. [Suspect]
     Active Substance: LEVOTHYROXINE
     Indication: PRODUCT USED FOR UNKNOWN INDICATION
     Dosage: 25 MILLIGRAM DAILY;
     Route: 065
  3. SUTENT [Suspect]
     Active Substance: SUNITINIB MALATE
     Indication: PRODUCT USED FOR UNKNOWN INDICATION
     Dosage: 50 MILLIGRAM DAILY;
     Route: 065
     Dates: start: 201409
  4. TAMSULOSIN [Suspect]
     Active Substance: TAMSULOSIN
     Indication: PRODUCT USED FOR UNKNOWN INDICATION
     Dosage: .4 MILLIGRAM DAILY;
     Route: 065
  5. AMLODIPINE [Suspect]
     Active Substance: AMLODIPINE BESYLATE
     Indication: HYPERTENSION
     Dosage: 5 MILLIGRAM DAILY;
     Route: 065
     Dates: start: 201501
  6. METOPROLOL [Suspect]
     Active Substance: METOPROLOL
     Indication: HYPERTENSION
     Dosage: 100 MILLIGRAM DAILY;
     Route: 065
     Dates: start: 201501

REACTIONS (22)
  - Dry skin [Not Recovered/Not Resolved]
  - Vision blurred [Not Recovered/Not Resolved]
  - Dizziness [Not Recovered/Not Resolved]
  - Pain [Unknown]
  - Rash macular [Unknown]
  - Palmar-plantar erythrodysaesthesia syndrome [Unknown]
  - Flatulence [Unknown]
  - Oral herpes [Unknown]
  - Hypertension [Recovered/Resolved]
  - Skin discolouration [Unknown]
  - Madarosis [Unknown]
  - Erythema [Not Recovered/Not Resolved]
  - Skin exfoliation [Unknown]
  - Skin papilloma [Unknown]
  - Epistaxis [Unknown]
  - Eye swelling [Unknown]
  - Hair colour changes [Unknown]
  - Dysgeusia [Unknown]
  - Skin fissures [Unknown]
  - Swelling face [Unknown]
  - Ageusia [Unknown]
  - Nasopharyngitis [Unknown]
